FAERS Safety Report 6079035-1 (Version None)
Quarter: 2009Q1

REPORT INFORMATION
  Report Type: 
  Country: None (occurrence: None)
  Receive Date: 20090216
  Receipt Date: 20090203
  Transmission Date: 20090719
  Serious: Yes (Hospitalization)
  Sender: FDA-Public Use
  Company Number: US-ROCHE-612366

PATIENT
  Sex: Female
  Weight: 109.9 kg

DRUGS (16)
  1. PEG-INTERFERON A-2A (RO 25-8310) [Suspect]
     Indication: HEPATITIS C
     Route: 065
     Dates: start: 20070810, end: 20080314
  2. RIBAVIRIN [Suspect]
     Indication: HEPATITIS C
     Route: 065
     Dates: start: 20070810
  3. RIBAVIRIN [Suspect]
     Dosage: DOSAGE INCREASED
     Route: 065
     Dates: end: 20080211
  4. RIBAVIRIN [Suspect]
     Route: 065
     Dates: end: 20080407
  5. PROCRIT [Suspect]
     Indication: ANAEMIA
     Dosage: DOSAGE: 40,000 UNITS  1 IN 1 WEEK
     Route: 058
     Dates: start: 20070918
  6. PROCRIT [Suspect]
     Dosage: DOSAGE INCREASED TO 60,000 UNITS  WEEKLY
     Route: 058
     Dates: start: 20080310, end: 20080715
  7. LOTREL [Concomitant]
     Route: 048
     Dates: start: 20070101
  8. HYDROCHLOROTHIAZIDE [Concomitant]
     Route: 048
     Dates: start: 20070101
  9. VENLAFAXINE HCL [Concomitant]
     Route: 048
     Dates: start: 20070101
  10. LORAZEPAM [Concomitant]
     Dates: start: 20080201
  11. TEMAZEPAM [Concomitant]
     Dates: start: 20080501
  12. PREDNISONE [Concomitant]
     Dates: start: 20080601
  13. OLMESARTAN MEDOXOMIL [Concomitant]
     Dates: start: 20080601
  14. HYDROCODONE BITARTRATE [Concomitant]
     Dosage: DRUG REPORTED AS: HYDROCODONE BITARTRATE + ACETAMINOPHEN
     Dates: start: 20080601
  15. FLUOXETINE HYDROCHLORIDE [Concomitant]
     Dates: start: 20080601
  16. CYCLOBENZAPRINE HCL [Concomitant]
     Route: 048
     Dates: start: 20080601

REACTIONS (5)
  - ANAEMIA [None]
  - APLASIA PURE RED CELL [None]
  - HEADACHE [None]
  - LICHEN PLANUS [None]
  - UPPER RESPIRATORY TRACT INFECTION [None]
